FAERS Safety Report 8319443-9 (Version None)
Quarter: 2012Q2

REPORT INFORMATION
  Report Type: 
  Country: None (occurrence: None)
  Receive Date: 20120426
  Receipt Date: 20120426
  Transmission Date: 20120825
  Serious: Yes (Hospitalization)
  Sender: FDA-Public Use
  Company Number: None

PATIENT
  Age: 48 Year
  Sex: Female

DRUGS (24)
  1. BENICAR [Concomitant]
  2. OXYCODONE HCL [Concomitant]
  3. TRAZODONE HCL [Concomitant]
  4. CARDIZEM [Concomitant]
  5. SERTRALINE HYDROCHLORIDE [Concomitant]
  6. DEPAKOTE [Concomitant]
  7. ENLAPRIL [Concomitant]
  8. XANAX [Concomitant]
  9. HECTOROL [Suspect]
     Dosage: 0.5 MCG 3X QW 1.0 MCG 3X QW 2.0 MCG 3X QW 3.0 MCG 3X QW 0.5 MCG 3X QW 1.5 MCG 3X QW
     Dates: start: 20120210
  10. HECTOROL [Suspect]
     Dosage: 0.5 MCG 3X QW 1.0 MCG 3X QW 2.0 MCG 3X QW 3.0 MCG 3X QW 0.5 MCG 3X QW 1.5 MCG 3X QW
     Dates: start: 20120113, end: 20120209
  11. HECTOROL [Suspect]
     Dosage: 0.5 MCG 3X QW 1.0 MCG 3X QW 2.0 MCG 3X QW 3.0 MCG 3X QW 0.5 MCG 3X QW 1.5 MCG 3X QW
     Dates: start: 20110423, end: 20110609
  12. HECTOROL [Suspect]
     Dosage: 0.5 MCG 3X QW 1.0 MCG 3X QW 2.0 MCG 3X QW 3.0 MCG 3X QW 0.5 MCG 3X QW 1.5 MCG 3X QW
     Dates: start: 20101224, end: 20110422
  13. HECTOROL [Suspect]
     Dosage: 0.5 MCG 3X QW 1.0 MCG 3X QW 2.0 MCG 3X QW 3.0 MCG 3X QW 0.5 MCG 3X QW 1.5 MCG 3X QW
     Dates: start: 20120106, end: 20120112
  14. HECTOROL [Suspect]
     Dosage: 0.5 MCG 3X QW 1.0 MCG 3X QW 2.0 MCG 3X QW 3.0 MCG 3X QW 0.5 MCG 3X QW 1.5 MCG 3X QW
     Dates: start: 20111105, end: 20120105
  15. FOSRENOL [Concomitant]
  16. WARFARIN SODIUM [Concomitant]
  17. EPOGEN [Concomitant]
  18. PHOSLO [Concomitant]
  19. NEPRO LIQUID [Concomitant]
  20. SIMVASTATIN [Concomitant]
  21. VENOFER/IRON [Concomitant]
  22. CLONIDINE [Concomitant]
  23. FELODIPINE [Concomitant]
  24. HUMULIN N [Concomitant]

REACTIONS (4)
  - NAUSEA [None]
  - DECREASED APPETITE [None]
  - VOMITING [None]
  - ABDOMINAL PAIN UPPER [None]
